FAERS Safety Report 12906294 (Version 4)
Quarter: 2017Q1

REPORT INFORMATION
  Report Type: Spontaneous
  Country: US (occurrence: US)
  Receive Date: 20161103
  Receipt Date: 20170120
  Transmission Date: 20170428
  Serious: Yes (Other)
  Sender: FDA-Public Use
  Company Number: US-PFIZER INC-2016092205

PATIENT
  Age: 59 Year
  Sex: Male
  Weight: 111.1 kg

DRUGS (6)
  1. IBRANCE [Suspect]
     Active Substance: PALBOCICLIB
     Indication: BREAST CANCER MALE
     Dosage: 100 MG, CYCLIC (1 CAPSULE DAILY 21 DAY ON, 7 DAYS OFF )(DAILY FOR 21 DAYS)
     Route: 048
     Dates: start: 20160209
  2. FEMARA [Concomitant]
     Active Substance: LETROZOLE
  3. COUMADIN [Concomitant]
     Active Substance: WARFARIN SODIUM
     Dosage: UNK
  4. LETROZOLE. [Concomitant]
     Active Substance: LETROZOLE
     Indication: HORMONE THERAPY
     Dosage: 0.25 MG, DAILY
     Route: 048
  5. WARFARIN [Concomitant]
     Active Substance: WARFARIN
     Indication: ANTICOAGULANT THERAPY
     Dosage: 5 MG, DAILY
     Route: 048
  6. GABAPENTIN. [Concomitant]
     Active Substance: GABAPENTIN
     Indication: NEUROPATHY PERIPHERAL
     Dosage: 300 MG, DAILY
     Route: 048
     Dates: start: 2016

REACTIONS (9)
  - Haematemesis [Unknown]
  - Vomiting [Unknown]
  - Memory impairment [Unknown]
  - Productive cough [Recovering/Resolving]
  - Blister [Unknown]
  - Skin swelling [Unknown]
  - Purpura [Unknown]
  - Pruritus [Unknown]
  - Product use issue [Unknown]
